APPROVED DRUG PRODUCT: MISOPROSTOL
Active Ingredient: MISOPROSTOL
Strength: 0.1MG
Dosage Form/Route: TABLET;ORAL
Application: A210201 | Product #001 | TE Code: AB
Applicant: ACQ PHARMA LLC
Approved: Jul 2, 2019 | RLD: No | RS: No | Type: RX